FAERS Safety Report 19199307 (Version 1)
Quarter: 2021Q2

REPORT INFORMATION
  Report Type: Spontaneous
  Country: US (occurrence: US)
  Receive Date: 20210429
  Receipt Date: 20210429
  Transmission Date: 20210717
  Serious: Yes (Disabling)
  Sender: FDA-Public Use
  Company Number: None

PATIENT
  Age: 61 Year
  Sex: Male
  Weight: 88.2 kg

DRUGS (5)
  1. ATORVASTATIN [Concomitant]
     Active Substance: ATORVASTATIN
  2. IMMUNE BOOSTER DX [Concomitant]
  3. CIPROFLOXACIN, 500 MG [Suspect]
     Active Substance: CIPROFLOXACIN
     Indication: URINARY TRACT INFECTION
     Dosage: ?          QUANTITY:1 TABLET(S);?
     Route: 048
     Dates: start: 20210329, end: 20210329
  4. CIPROFLOXACIN, 500 MG [Suspect]
     Active Substance: CIPROFLOXACIN
     Indication: PROSTATITIS
     Dosage: ?          QUANTITY:1 TABLET(S);?
     Route: 048
     Dates: start: 20210329, end: 20210329
  5. PAPAYA LEAVES [Concomitant]

REACTIONS (6)
  - Tendonitis [None]
  - Pain in extremity [None]
  - Neuralgia [None]
  - Pain [None]
  - Hernia [None]
  - Abdominal pain upper [None]

NARRATIVE: CASE EVENT DATE: 20210329
